FAERS Safety Report 24387272 (Version 2)
Quarter: 2024Q4

REPORT INFORMATION
  Report Type: Spontaneous
  Country: CN (occurrence: CN)
  Receive Date: 20241002
  Receipt Date: 20241004
  Transmission Date: 20250115
  Serious: Yes (Life-Threatening, Hospitalization)
  Sender: ABBVIE
  Company Number: CN-ABBVIE-5945107

PATIENT
  Age: 55 Year
  Sex: Female
  Weight: 59 kg

DRUGS (3)
  1. ADALIMUMAB [Suspect]
     Active Substance: ADALIMUMAB
     Indication: Sjogren^s syndrome
     Route: 058
     Dates: start: 20240215, end: 20240615
  2. ADALIMUMAB [Suspect]
     Active Substance: ADALIMUMAB
     Indication: Vision blurred
     Route: 058
  3. FELODIPINE [Concomitant]
     Active Substance: FELODIPINE
     Indication: Hypertension
     Dosage: FELODIPINE SUSTAINED RELEASE TABLETS
     Route: 048
     Dates: start: 20200513, end: 20240914

REACTIONS (6)
  - Tuberculosis [Not Recovered/Not Resolved]
  - Oropharyngeal pain [Unknown]
  - Alanine aminotransferase increased [Unknown]
  - Aspartate aminotransferase increased [Unknown]
  - Carbohydrate antigen 19-9 increased [Unknown]
  - Carbohydrate antigen 125 increased [Unknown]

NARRATIVE: CASE EVENT DATE: 20240908
